FAERS Safety Report 20983326 (Version 7)
Quarter: 2022Q4

REPORT INFORMATION
  Report Type: Report from Study
  Country: US (occurrence: US)
  Receive Date: 20220620
  Receipt Date: 20221020
  Transmission Date: 20230112
  Serious: Yes (Other)
  Sender: FDA-Public Use
  Company Number: US-GLAXOSMITHKLINE-US2022AMR089826

PATIENT
  Age: 83 Year
  Sex: Male

DRUGS (1)
  1. BELANTAMAB MAFODOTIN [Suspect]
     Active Substance: BELANTAMAB MAFODOTIN
     Indication: Product used for unknown indication
     Dosage: 2.5 MG/KG,(200MG) EVERY 3 WEEKS
     Dates: start: 20220605

REACTIONS (5)
  - Visual acuity reduced [Recovering/Resolving]
  - Corneal toxicity [Unknown]
  - Keratopathy [Unknown]
  - Dry eye [Not Recovered/Not Resolved]
  - Sensation of foreign body [Unknown]

NARRATIVE: CASE EVENT DATE: 20220606
